FAERS Safety Report 12521666 (Version 1)
Quarter: 2016Q3

REPORT INFORMATION
  Report Type: Spontaneous
  Country: US (occurrence: US)
  Receive Date: 20160701
  Receipt Date: 20160701
  Transmission Date: 20161109
  Serious: No
  Sender: FDA-Public Use
  Company Number: PHEH2016US016169

PATIENT
  Sex: Male
  Weight: 104.3 kg

DRUGS (4)
  1. INLYTA [Suspect]
     Active Substance: AXITINIB
     Indication: METASTASES TO BONE
     Dosage: 5 MG, BID (BY MOUTH)
     Route: 048
     Dates: start: 201508
  2. INLYTA [Suspect]
     Active Substance: AXITINIB
     Dosage: 2 MG, BID
     Route: 048
     Dates: start: 201602
  3. VOTRIENT [Suspect]
     Active Substance: PAZOPANIB HYDROCHLORIDE
     Indication: PRODUCT USED FOR UNKNOWN INDICATION
     Dosage: 200 MG, QD
     Route: 065
  4. INLYTA [Suspect]
     Active Substance: AXITINIB
     Dosage: 1 MG, BID (BY MOUTH)
     Route: 048

REACTIONS (5)
  - Pain [Recovered/Resolved]
  - Hand fracture [Unknown]
  - Foot fracture [Unknown]
  - Dysphonia [Recovered/Resolved]
  - Blister [Recovered/Resolved]
